FAERS Safety Report 8442449 (Version 4)
Quarter: 2014Q3

REPORT INFORMATION
  Report Type: Spontaneous
  Country: US (occurrence: US)
  Receive Date: 20120306
  Receipt Date: 20140725
  Transmission Date: 20150326
  Serious: Yes (Hospitalization, Other)
  Sender: FDA-Public Use
  Company Number: US-US-EMD SERONO, INC.-239187J08USA

PATIENT
  Age: 35 Year
  Sex: Female
  Weight: 48 kg

DRUGS (4)
  1. UNSPECIFIED IRON PIL [Concomitant]
     Indication: ANAEMIA
     Dosage: SOMETIMES
  2. REBIF [Suspect]
     Active Substance: INTERFERON BETA-1A
     Route: 058
  3. ALEVE [Concomitant]
     Active Substance: NAPROXEN SODIUM
     Indication: PREMEDICATION
  4. REBIF [Suspect]
     Active Substance: INTERFERON BETA-1A
     Indication: MULTIPLE SCLEROSIS
     Route: 058
     Dates: start: 20040301, end: 201310

REACTIONS (3)
  - Urinary tract obstruction [Not Recovered/Not Resolved]
  - Post procedural haemorrhage [Unknown]
  - Uterine leiomyoma [Unknown]

NARRATIVE: CASE EVENT DATE: 2004
